FAERS Safety Report 7479176-8 (Version None)
Quarter: 2011Q2

REPORT INFORMATION
  Report Type: 
  Country: None (occurrence: None)
  Receive Date: 20110513
  Receipt Date: 20110509
  Transmission Date: 20111010
  Serious: Yes (Hospitalization)
  Sender: FDA-Public Use
  Company Number: FR-BRISTOL-MYERS SQUIBB COMPANY-15731391

PATIENT
  Age: 74 Year
  Sex: Female

DRUGS (2)
  1. PAROXETINE HCL [Suspect]
     Route: 048
     Dates: start: 20110303, end: 20110311
  2. ABILIFY [Suspect]
     Route: 048
     Dates: start: 20110302, end: 20110311

REACTIONS (2)
  - CONDITION AGGRAVATED [None]
  - BINOCULAR EYE MOVEMENT DISORDER [None]
